FAERS Safety Report 6036268-8 (Version None)
Quarter: 2009Q1

REPORT INFORMATION
  Report Type: 
  Country: None (occurrence: None)
  Receive Date: 20090113
  Receipt Date: 20090106
  Transmission Date: 20090719
  Serious: Yes (Other)
  Sender: FDA-Public Use
  Company Number: PHEH2007US14412

PATIENT
  Sex: Female
  Weight: 67.12 kg

DRUGS (4)
  1. AREDIA [Suspect]
  2. ZOMETA [Suspect]
  3. FEMARA [Concomitant]
     Indication: BREAST CANCER
  4. EFFEXOR [Concomitant]

REACTIONS (19)
  - ANHEDONIA [None]
  - ANXIETY [None]
  - BIOPSY BREAST [None]
  - BREAST CANCER [None]
  - BREAST CANCER METASTATIC [None]
  - CENTRAL VENOUS CATHETERISATION [None]
  - DENTAL CARIES [None]
  - HAEMANGIOMA OF LIVER [None]
  - HEPATIC LESION [None]
  - HYSTERECTOMY [None]
  - INJURY [None]
  - MASTECTOMY [None]
  - METASTASES TO BONE [None]
  - METASTASES TO LIVER [None]
  - OSTEONECROSIS [None]
  - PAIN [None]
  - TOOTH EROSION [None]
  - TOOTH EXTRACTION [None]
  - TOOTHACHE [None]
